FAERS Safety Report 8814046 (Version 1)
Quarter: 2012Q4

REPORT INFORMATION
  Report Type: Spontaneous
  Country: US (occurrence: None)
  Receive Date: 20120926
  Receipt Date: 20120926
  Transmission Date: 20130627
  Serious: Yes (Hospitalization)
  Sender: FDA-Public Use
  Company Number: None

PATIENT
  Sex: Female
  Weight: 77 kg

DRUGS (3)
  1. OXALIPLATIN [Suspect]
  2. BEVACIZUMAB [Suspect]
  3. CAPECITABINE [Suspect]

REACTIONS (2)
  - Infusion related reaction [None]
  - Hypersensitivity [None]
